FAERS Safety Report 5890017-2 (Version None)
Quarter: 2008Q3

REPORT INFORMATION
  Report Type: 
  Country: None (occurrence: None)
  Receive Date: 20080919
  Receipt Date: 20080908
  Transmission Date: 20090109
  Serious: Yes (Other)
  Sender: FDA-Public Use
  Company Number: US-JNJCH-2008023590

PATIENT
  Age: 59 Year
  Sex: Male
  Weight: 93 kg

DRUGS (1)
  1. LISTERINE WHITENING QUICK DISSOLVING STRIPS [Suspect]
     Indication: DRUG USE FOR UNKNOWN INDICATION
     Dosage: TEXT:1 STRIP UPPER + LOWER MOUTH;ONCE DAILY
     Route: 048
     Dates: start: 20080825, end: 20080906

REACTIONS (2)
  - APPLICATION SITE VESICLES [None]
  - BURNING SENSATION [None]
